FAERS Safety Report 5340667-7 (Version None)
Quarter: 2007Q2

REPORT INFORMATION
  Report Type: 
  Country: None (occurrence: None)
  Receive Date: 20070405
  Receipt Date: 20070103
  Transmission Date: 20071010
  Serious: Yes (Other)
  Sender: FDA-Public Use
  Company Number: US200701001201

PATIENT
  Age: 59 Year
  Sex: Female

DRUGS (4)
  1. CYMBALTA [Suspect]
     Dosage: 30 MG
     Dates: start: 20061204, end: 20061223
  2. LUVOX [Concomitant]
  3. ESZOPICLONE (ESZOPICLONE) [Concomitant]
  4. ZITHROMAX [Concomitant]

REACTIONS (4)
  - CONFUSIONAL STATE [None]
  - HALLUCINATION, VISUAL [None]
  - INFECTION [None]
  - SEROTONIN SYNDROME [None]
